FAERS Safety Report 8333378-7 (Version None)
Quarter: 2012Q2

REPORT INFORMATION
  Report Type: 
  Country: None (occurrence: None)
  Receive Date: 20120503
  Receipt Date: 20120426
  Transmission Date: 20120825
  Serious: Yes (Hospitalization)
  Sender: FDA-Public Use
  Company Number: GB-JNJFOC-20120305020

PATIENT
  Sex: Female

DRUGS (3)
  1. PALIPERIDONE [Suspect]
     Route: 030
     Dates: start: 20120101
  2. OLANZAPINE [Concomitant]
     Indication: PRODUCT USED FOR UNKNOWN INDICATION
     Route: 065
  3. PALIPERIDONE [Suspect]
     Indication: BIPOLAR DISORDER
     Route: 030
     Dates: start: 20111201

REACTIONS (3)
  - DISINHIBITION [None]
  - DRUG RESISTANCE [None]
  - AGGRESSION [None]
